FAERS Safety Report 9703938 (Version 13)
Quarter: 2014Q4

REPORT INFORMATION
  Report Type: Report from Study
  Country: US (occurrence: US)
  Receive Date: 20131122
  Receipt Date: 20141110
  Transmission Date: 20150529
  Serious: Yes (Life-Threatening, Hospitalization, Other)
  Sender: FDA-Public Use
  Company Number: US-VERTEX PHARMACEUTICALS INC-2013-011098

PATIENT
  Age: 33 Year
  Sex: Male
  Weight: 75 kg

DRUGS (53)
  1. KALYDECO [Suspect]
     Active Substance: IVACAFTOR
     Indication: CYSTIC FIBROSIS
     Dosage: 250 MG, QPM
     Route: 048
     Dates: start: 20130524, end: 20131112
  2. PREVACID [Concomitant]
     Active Substance: LANSOPRAZOLE
     Indication: GASTROOESOPHAGEAL REFLUX DISEASE
     Dosage: 30 MG, QD
     Route: 048
     Dates: start: 2009
  3. TOBRAMYCIN. [Concomitant]
     Active Substance: TOBRAMYCIN
     Dosage: 850 MG, QD
     Route: 042
     Dates: start: 20110615, end: 20110622
  4. TOBRAMYCIN. [Concomitant]
     Active Substance: TOBRAMYCIN
     Dosage: 1 G, QD
     Route: 042
     Dates: start: 20131203, end: 20131205
  5. PULMICORT TURBUHALER [Concomitant]
     Active Substance: BUDESONIDE
     Indication: ASTHMA
     Dosage: UNK
     Dates: start: 20130616, end: 20130620
  6. ACETAMINOPHEN. [Concomitant]
     Active Substance: ACETAMINOPHEN
     Indication: PAIN
     Dosage: UNK
     Dates: start: 20130615, end: 20130618
  7. PROMETHAZINE [Concomitant]
     Active Substance: PROMETHAZINE\PROMETHAZINE HYDROCHLORIDE
     Indication: NAUSEA
     Dosage: UNK
     Dates: start: 20131108
  8. MEROPENEM. [Suspect]
     Active Substance: MEROPENEM
     Dosage: 1 G, TID
     Route: 042
     Dates: start: 20131119, end: 20131205
  9. PULMOZYME [Concomitant]
     Active Substance: DORNASE ALFA
     Indication: CYSTIC FIBROSIS LUNG
     Dosage: 2.5 MG, QD
     Dates: start: 2009
  10. SINGULAIR [Concomitant]
     Active Substance: MONTELUKAST SODIUM
     Indication: ASTHMA
     Dosage: 10 MG, QD
     Route: 048
     Dates: start: 2003
  11. TOBRAMYCIN. [Concomitant]
     Active Substance: TOBRAMYCIN
     Dosage: 850 MG, QD
     Route: 042
     Dates: start: 20130616, end: 20130616
  12. LEVAQUIN [Concomitant]
     Active Substance: LEVOFLOXACIN
     Indication: BRONCHITIS
     Dosage: 750 MG, QD
     Route: 048
     Dates: start: 20121025, end: 20121102
  13. VANCOMYCIN [Concomitant]
     Active Substance: VANCOMYCIN
     Dosage: 1000 MG, BID
     Route: 042
     Dates: start: 20120312, end: 20120312
  14. VANCOMYCIN [Concomitant]
     Active Substance: VANCOMYCIN
     Dosage: 1500 MG, BID
     Route: 042
     Dates: start: 20130620, end: 20130620
  15. VANCOMYCIN [Concomitant]
     Active Substance: VANCOMYCIN
     Dosage: 1 G, TID
     Route: 042
     Dates: start: 20131202, end: 20131205
  16. VICODIN [Concomitant]
     Active Substance: ACETAMINOPHEN\HYDROCODONE BITARTRATE
     Indication: BIOPSY LIVER
     Dosage: 1 DF, Q4-6 HRS
     Route: 048
  17. ATIVAN [Concomitant]
     Active Substance: LORAZEPAM
     Indication: BIOPSY LIVER
     Dosage: 1 MG, UNK
  18. MEROPENEM. [Suspect]
     Active Substance: MEROPENEM
     Dosage: 1 G, TID
     Route: 042
     Dates: start: 20130616, end: 20130619
  19. ZITHROMAX [Suspect]
     Active Substance: AZITHROMYCIN DIHYDRATE
     Indication: CYSTIC FIBROSIS LUNG
     Dosage: 500 MG, MWF
     Route: 048
     Dates: end: 20131125
  20. MOTRIN [Concomitant]
     Active Substance: IBUPROFEN
     Indication: ARTHROPATHY
     Dosage: 400 MG, TIW
     Dates: end: 20131113
  21. CREON [Concomitant]
     Active Substance: PANCRELIPASE AMYLASE\PANCRELIPASE LIPASE\PANCRELIPASE PROTEASE
     Indication: PANCREATIC INSUFFICIENCY
     Dosage: UNK
     Dates: start: 2011
  22. TORADOL [Concomitant]
     Active Substance: KETOROLAC TROMETHAMINE
     Indication: PAIN
     Dosage: UNK
     Dates: start: 20130615, end: 20130615
  23. FENTANYL CITRATE. [Concomitant]
     Active Substance: FENTANYL CITRATE
     Dosage: 250 ?G, SINGLE
     Route: 042
     Dates: start: 20130615
  24. BACTRIM DS [Concomitant]
     Active Substance: SULFAMETHOXAZOLE\TRIMETHOPRIM
     Dosage: UNK, BID
     Route: 048
     Dates: start: 20110622, end: 20110624
  25. VX-770 FDC [Suspect]
     Active Substance: IVACAFTOR
     Indication: CYSTIC FIBROSIS
     Dosage: 250 MG, QAM
     Route: 048
     Dates: start: 20130524, end: 20131112
  26. CAYSTON [Concomitant]
     Active Substance: AZTREONAM
     Indication: CYSTIC FIBROSIS LUNG
     Dosage: 75 MG, TID
     Dates: start: 2012
  27. SYMBICORT [Concomitant]
     Active Substance: BUDESONIDE\FORMOTEROL FUMARATE DIHYDRATE
  28. TOBRAMYCIN. [Concomitant]
     Active Substance: TOBRAMYCIN
     Dosage: UNK
  29. LEVAQUIN [Concomitant]
     Active Substance: LEVOFLOXACIN
     Dosage: 750 MG, QD
     Route: 048
     Dates: start: 20130619, end: 20130620
  30. PROPOFOL. [Concomitant]
     Active Substance: PROPOFOL
     Dosage: UNK
     Dates: start: 20130615
  31. VERSED [Concomitant]
     Active Substance: MIDAZOLAM HYDROCHLORIDE
     Dosage: UNK
     Dates: start: 20130615
  32. VX-809 FDC [Suspect]
     Active Substance: IVACAFTOR
     Indication: CYSTIC FIBROSIS
     Dosage: 600 MG, QAM
     Route: 048
     Dates: start: 20130524, end: 20131112
  33. FLONASE [Concomitant]
     Active Substance: FLUTICASONE PROPIONATE
     Indication: CHRONIC SINUSITIS
     Dosage: UNK
     Route: 045
     Dates: start: 2004
  34. TOBI [Concomitant]
     Active Substance: TOBRAMYCIN
     Dosage: 300 MG, BID, QOMONTH
     Route: 055
  35. VITAMAX [Concomitant]
     Indication: CYSTIC FIBROSIS
     Dosage: 1 DF, QD
     Dates: start: 2011
  36. ALBUTEROL. [Concomitant]
     Active Substance: ALBUTEROL
  37. VANCOMYCIN [Concomitant]
     Active Substance: VANCOMYCIN
     Dosage: 1000 MG, BID
     Route: 042
     Dates: start: 20130618, end: 20130619
  38. CALTRATE [Concomitant]
     Active Substance: CALCIUM CARBONATE
     Dosage: UNK
     Dates: start: 20120209
  39. TOBI [Concomitant]
     Active Substance: TOBRAMYCIN
     Indication: CYSTIC FIBROSIS
     Dosage: UNK
     Dates: start: 2009
  40. XOPENEX [Concomitant]
     Active Substance: LEVALBUTEROL HYDROCHLORIDE
     Indication: CYSTIC FIBROSIS LUNG
     Dosage: 0.63 MG, QD
     Route: 048
     Dates: start: 2012
  41. TOBRAMYCIN. [Concomitant]
     Active Substance: TOBRAMYCIN
     Dosage: 1000 MG, QD
     Route: 042
     Dates: start: 20130617, end: 20130617
  42. URSODIOL. [Concomitant]
     Active Substance: URSODIOL
     Dosage: 500 MG, BID
     Dates: start: 201403
  43. ZOFRAN [Concomitant]
     Active Substance: ONDANSETRON HYDROCHLORIDE
     Indication: NAUSEA
     Dosage: UNK
     Dates: start: 20130615, end: 20130615
  44. PEPCID [Concomitant]
     Active Substance: FAMOTIDINE
     Indication: GASTROOESOPHAGEAL REFLUX DISEASE
     Dosage: UNK
     Dates: start: 20130619, end: 20130620
  45. ULTRASE [Concomitant]
     Active Substance: PANCRELIPASE
     Dosage: UNK
     Dates: end: 201011
  46. CEFEPIME [Concomitant]
     Active Substance: CEFEPIME\CEFEPIME HYDROCHLORIDE
     Dosage: 2 G, TID
     Route: 042
     Dates: start: 20110614, end: 20110624
  47. MEROPENEM. [Suspect]
     Active Substance: MEROPENEM
     Indication: ABDOMINAL INFECTION
     Dosage: 1 G, TID
     Route: 042
     Dates: start: 20120302, end: 20120312
  48. TOBI [Concomitant]
     Active Substance: TOBRAMYCIN
     Dosage: 300 MG, BID
     Route: 055
     Dates: start: 20130616, end: 20130620
  49. TOBRAMYCIN. [Concomitant]
     Active Substance: TOBRAMYCIN
     Dosage: 1 G, QD
     Route: 042
     Dates: start: 20120303, end: 20120311
  50. LEVAQUIN [Concomitant]
     Active Substance: LEVOFLOXACIN
     Dosage: 750 MG, QD
     Route: 048
     Dates: start: 20140102, end: 20140108
  51. VECURONIUM [Concomitant]
     Active Substance: VECURONIUM BROMIDE
     Dosage: UNK
     Dates: start: 20130615
  52. IPRATROPIUM BROMIDE. [Concomitant]
     Active Substance: IPRATROPIUM BROMIDE
     Dosage: 2 QD
  53. VANCOMYCIN [Concomitant]
     Active Substance: VANCOMYCIN
     Dosage: 1250 MG, BID
     Route: 042
     Dates: start: 20120302, end: 20120308

REACTIONS (3)
  - Cholestasis [Recovered/Resolved]
  - Post procedural haematoma [Recovering/Resolving]
  - Hepatitis [Recovered/Resolved]

NARRATIVE: CASE EVENT DATE: 20131113
